FAERS Safety Report 5777223 (Version 3)
Quarter: 2018Q4

REPORT INFORMATION
  Report Type: Report from Study
  Country: JP (occurrence: JP)
  Receive Date: 20050418
  Receipt Date: 20181227
  Transmission Date: 20190205
  Serious: Yes (Death, Other)
  Sender: FDA-Public Use
  Company Number: PHHO2005JP05907

PATIENT
  Age: 73 Year
  Sex: Female

DRUGS (6)
  1. GLIVEC [Suspect]
     Active Substance: IMATINIB MESYLATE
     Indication: GASTROINTESTINAL STROMAL TUMOUR
     Dosage: 400 MG, QD
     Route: 048
     Dates: start: 20040128, end: 20040405
  2. GLIVEC [Suspect]
     Active Substance: IMATINIB MESYLATE
     Dosage: 300 MG, QD
     Route: 048
     Dates: start: 20041026, end: 20041105
  3. GLIVEC [Suspect]
     Active Substance: IMATINIB MESYLATE
     Dosage: 100 MG, TID
     Route: 048
     Dates: start: 20040611, end: 20040620
  4. GLIVEC [Suspect]
     Active Substance: IMATINIB MESYLATE
     Dosage: 300 MG, QD
     Route: 048
     Dates: start: 20041109, end: 20041203
  5. GLIVEC [Suspect]
     Active Substance: IMATINIB MESYLATE
     Dosage: 400 MG, QD
     Route: 048
     Dates: start: 20040420, end: 20040426
  6. GLIVEC [Suspect]
     Active Substance: IMATINIB MESYLATE
     Dosage: 300 MG, QD
     Route: 048
     Dates: start: 20041213, end: 20050219

REACTIONS (20)
  - Oliguria [Recovered/Resolved]
  - Pyrexia [Not Recovered/Not Resolved]
  - Malignant neoplasm progression [Fatal]
  - Oedema [Recovering/Resolving]
  - Decreased appetite [Unknown]
  - Nausea [Recovered/Resolved]
  - Pleural effusion [Recovering/Resolving]
  - Nausea [Recovered/Resolved]
  - Stress [Unknown]
  - Oedema [Recovered/Resolved]
  - Pneumonia aspiration [Fatal]
  - Asthenia [Unknown]
  - Pyrexia [Fatal]
  - Pericardial effusion [Recovering/Resolving]
  - Jaundice [Recovered/Resolved]
  - Gastrointestinal obstruction [Fatal]
  - Pleural effusion [Recovered/Resolved]
  - Vomiting [Recovered/Resolved]
  - Hepatic function abnormal [Recovered/Resolved]
  - Vomiting [Recovered/Resolved]

NARRATIVE: CASE EVENT DATE: 20040222
